FAERS Safety Report 16279389 (Version 4)
Quarter: 2019Q2

REPORT INFORMATION
  Report Type: Report from Study
  Country: None (occurrence: ES)
  Receive Date: 20190507
  Receipt Date: 20190521
  Transmission Date: 20190711
  Serious: Yes (Hospitalization, Other)
  Sender: FDA-Public Use
  Company Number: ES-ABBVIE-19S-144-2749382-00

PATIENT
  Age: 78 Year
  Sex: Male
  Weight: 70 kg

DRUGS (1)
  1. DUODOPA [Suspect]
     Active Substance: CARBIDOPA\LEVODOPA
     Indication: PARKINSON^S DISEASE
     Route: 050
     Dates: start: 20140619

REACTIONS (5)
  - Disorientation [Unknown]
  - Faeces discoloured [Unknown]
  - Polyp [Recovered/Resolved]
  - Haematochezia [Recovered/Resolved]
  - Abdominal pain [Recovered/Resolved]

NARRATIVE: CASE EVENT DATE: 2019
